FAERS Safety Report 11106224 (Version 1)
Quarter: 2015Q2

REPORT INFORMATION
  Report Type: Spontaneous
  Country: US (occurrence: None)
  Receive Date: 20150511
  Receipt Date: 20150511
  Transmission Date: 20150821
  Serious: Yes (Hospitalization, Congenital Anomaly)
  Sender: FDA-Public Use
  Company Number: None

PATIENT
  Age: 0 Day
  Sex: Male
  Weight: 1.6 kg

DRUGS (1)
  1. MIRAPEX [Suspect]
     Active Substance: PRAMIPEXOLE DIHYDROCHLORIDE
     Indication: RESTLESS LEGS SYNDROME
     Dosage: THROUGHOUT PREGNANCY?PRAMIPEXOLE  QHS/BEDTIME  ORAL
     Route: 048

REACTIONS (2)
  - Foetal growth restriction [None]
  - Maternal drugs affecting foetus [None]

NARRATIVE: CASE EVENT DATE: 20150428
